FAERS Safety Report 12037537 (Version 1)
Quarter: 2016Q1

REPORT INFORMATION
  Report Type: Spontaneous
  Country: US (occurrence: None)
  Receive Date: 20160205
  Receipt Date: 20160205
  Transmission Date: 20160526
  Serious: No
  Sender: FDA-Public Use
  Company Number: None

PATIENT
  Sex: Female

DRUGS (1)
  1. STIVARGA [Suspect]
     Active Substance: REGORAFENIB
     Indication: GASTRIC CANCER
     Dosage: 3 TABLETS, DAILY FOR 21 DAYS, 7 DAYS OFF  ORALLY
     Dates: start: 20151014

REACTIONS (3)
  - Vomiting [None]
  - Diarrhoea [None]
  - Hyperkeratosis [None]
